FAERS Safety Report 4760855-8 (Version None)
Quarter: 2005Q3

REPORT INFORMATION
  Report Type: 
  Country: None (occurrence: None)
  Receive Date: 20050826
  Receipt Date: 20041123
  Transmission Date: 20060218
  Serious: Yes (Other)
  Sender: FDA-Public Use
  Company Number: USA-2004-0017812

PATIENT
  Sex: Female

DRUGS (1)
  1. OXYCODONE HCL [Suspect]

REACTIONS (2)
  - DRUG ABUSER [None]
  - SOMNOLENCE [None]
